FAERS Safety Report 24745551 (Version 1)
Quarter: 2024Q4

REPORT INFORMATION
  Report Type: Spontaneous
  Country: SK (occurrence: SK)
  Receive Date: 20241218
  Receipt Date: 20241218
  Transmission Date: 20250115
  Serious: Yes (Other)
  Sender: ABBVIE
  Company Number: SK-MLMSERVICE-20241206-PI282554-00306-1

PATIENT
  Age: 35 Year
  Sex: Male

DRUGS (18)
  1. RITONAVIR [Interacting]
     Active Substance: RITONAVIR
     Indication: Acquired immunodeficiency syndrome
     Route: 048
  2. DOLUTEGRAVIR [Suspect]
     Active Substance: DOLUTEGRAVIR
     Indication: Acquired immunodeficiency syndrome
     Route: 065
  3. MYCOPHENOLIC ACID [Concomitant]
     Active Substance: MYCOPHENOLIC ACID
     Indication: Immunosuppressant drug therapy
     Route: 048
     Dates: start: 202312
  4. MYCOPHENOLIC ACID [Concomitant]
     Active Substance: MYCOPHENOLIC ACID
     Indication: Immunosuppressant drug therapy
     Route: 048
  5. PREDNISONE [Concomitant]
     Active Substance: PREDNISONE
     Indication: Immunosuppressant drug therapy
     Route: 048
  6. DARUNAVIR [Interacting]
     Active Substance: DARUNAVIR
     Indication: Acquired immunodeficiency syndrome
     Route: 065
  7. BASILIXIMAB [Concomitant]
     Active Substance: BASILIXIMAB
     Indication: Immunosuppressant drug therapy
     Dosage: TWO DOSES ON DAY 0 AND 4
     Route: 042
     Dates: start: 20231210, end: 20231210
  8. BASILIXIMAB [Concomitant]
     Active Substance: BASILIXIMAB
     Indication: Immunosuppressant drug therapy
     Dosage: TWO DOSES ON DAY 0 AND 4.
     Route: 042
     Dates: start: 20231206, end: 20231206
  9. MERCAPTOPURINE [Concomitant]
     Active Substance: MERCAPTOPURINE
     Indication: Immunosuppressant drug therapy
     Dosage: DURING SURGERY
     Route: 042
  10. TACROLIMUS [Interacting]
     Active Substance: TACROLIMUS
     Indication: Immunosuppressant drug therapy
     Dosage: DAY 06, 07
     Route: 048
     Dates: start: 20231210, end: 20231211
  11. TACROLIMUS [Interacting]
     Active Substance: TACROLIMUS
     Indication: Immunosuppressant drug therapy
     Dosage: DAY 01-
     Route: 048
     Dates: start: 20231205, end: 20231205
  12. TACROLIMUS [Interacting]
     Active Substance: TACROLIMUS
     Indication: Immunosuppressant drug therapy
     Dosage: DAY 11
     Route: 048
     Dates: start: 20231215
  13. TACROLIMUS [Interacting]
     Active Substance: TACROLIMUS
     Indication: Immunosuppressant drug therapy
     Dosage: DAY 15 TO 30.
     Route: 048
     Dates: start: 20231219, end: 20240102
  14. TACROLIMUS [Interacting]
     Active Substance: TACROLIMUS
     Indication: Immunosuppressant drug therapy
     Dosage: DAY 02-
     Route: 048
     Dates: start: 20231204, end: 20231204
  15. TACROLIMUS [Interacting]
     Active Substance: TACROLIMUS
     Indication: Immunosuppressant drug therapy
     Dosage: DAY 09
     Route: 048
     Dates: start: 20231213, end: 20231213
  16. SULFAMETHOXAZOLE\TRIMETHOPRIM [Concomitant]
     Active Substance: SULFAMETHOXAZOLE\TRIMETHOPRIM
     Indication: Antifungal prophylaxis
  17. VALGANCICLOVIR [Concomitant]
     Active Substance: VALGANCICLOVIR
     Indication: Cytomegalovirus infection
     Route: 065
  18. RIFAMPIN [Concomitant]
     Active Substance: RIFAMPIN
     Indication: Hepatitis B
     Route: 048

REACTIONS (4)
  - HIV associated nephropathy [Recovering/Resolving]
  - Therapeutic product effect incomplete [Unknown]
  - Drug interaction [Recovering/Resolving]
  - Nephrosclerosis [Recovering/Resolving]

NARRATIVE: CASE EVENT DATE: 20231201
